FAERS Safety Report 9688913 (Version 1)
Quarter: 2013Q4

REPORT INFORMATION
  Report Type: Report from Study
  Country: IT (occurrence: IT)
  Receive Date: 20131114
  Receipt Date: 20131114
  Transmission Date: 20140711
  Serious: Yes (Other)
  Sender: FDA-Public Use
  Company Number: PHHY2013IT127469

PATIENT
  Sex: Male

DRUGS (1)
  1. SIGNIFOR [Suspect]
     Indication: PITUITARY-DEPENDENT CUSHING^S SYNDROME

REACTIONS (3)
  - Diabetes mellitus [Unknown]
  - Faecal incontinence [Unknown]
  - Abdominal pain upper [Unknown]
